FAERS Safety Report 9387068 (Version 1)
Quarter: 2013Q3

REPORT INFORMATION
  Report Type: Spontaneous
  Country: US (occurrence: None)
  Receive Date: 20130703
  Receipt Date: 20130703
  Transmission Date: 20140515
  Serious: Yes (Hospitalization)
  Sender: FDA-Public Use
  Company Number: None

PATIENT
  Age: 48 Year
  Sex: Male
  Weight: 46.5 kg

DRUGS (2)
  1. DEPAKOTE ER [Suspect]
     Route: 048
  2. HEPSERA [Suspect]
     Indication: HEPATITIS B
     Route: 048

REACTIONS (10)
  - Abdominal pain [None]
  - Oropharyngeal pain [None]
  - Vomiting [None]
  - Flank pain [None]
  - Weight decreased [None]
  - Asthenia [None]
  - Diarrhoea [None]
  - Pancreatitis [None]
  - Renal tubular acidosis [None]
  - Blood phosphorus decreased [None]
